FAERS Safety Report 9371743 (Version 1)
Quarter: 2013Q2

REPORT INFORMATION
  Report Type: Spontaneous
  Country: FR (occurrence: FR)
  Receive Date: 20130627
  Receipt Date: 20130627
  Transmission Date: 20140414
  Serious: Yes (Hospitalization)
  Sender: FDA-Public Use
  Company Number: FR-US-EMD SERONO, INC.-7218741

PATIENT
  Age: 44 Year
  Sex: Female

DRUGS (2)
  1. REBIF [Suspect]
     Indication: MULTIPLE SCLEROSIS
     Route: 058
     Dates: start: 200602, end: 201202
  2. AVLOCARDYL                         /00030001/ [Concomitant]
     Indication: TACHYCARDIA PAROXYSMAL
     Route: 048

REACTIONS (2)
  - Pulmonary arterial hypertension [Recovering/Resolving]
  - Dyspnoea exertional [Recovering/Resolving]
